FAERS Safety Report 4393138-9 (Version None)
Quarter: 2004Q3

REPORT INFORMATION
  Report Type: 
  Country: None (occurrence: None)
  Receive Date: 20040702
  Receipt Date: 20040623
  Transmission Date: 20050211
  Serious: Yes (Death)
  Sender: FDA-Public Use
  Company Number: JP-JNJFOC-20031003795

PATIENT
  Age: 70 Year
  Sex: Male

DRUGS (9)
  1. FENTANYL [Suspect]
     Indication: CANCER PAIN
     Dosage: SEE IMAGE TRANSDERMAL
     Route: 062
     Dates: start: 20030506, end: 20030510
  2. FENTANYL [Suspect]
     Indication: CANCER PAIN
     Dosage: SEE IMAGE TRANSDERMAL
     Route: 062
     Dates: start: 20030512
  3. MORPHINE [Concomitant]
  4. DICLOFENAC SODIUM [Concomitant]
  5. METOCLOPRAMIDE [Concomitant]
  6. FAMOTIDINE [Concomitant]
  7. BROTIZOLAM (BROTIZOLAM) [Concomitant]
  8. PROCHLORPERAZINE MALEATE (PROCHLORPERAZINE MALEATE) [Concomitant]
  9. ALUMINUM - MAGNESIUM HYDROXIDE (ALUDROX ^WYETH^) [Concomitant]

REACTIONS (3)
  - BLOOD ALKALINE PHOSPHATASE INCREASED [None]
  - BLOOD UREA INCREASED [None]
  - SOMNOLENCE [None]
